FAERS Safety Report 17751835 (Version 6)
Quarter: 2023Q2

REPORT INFORMATION
  Report Type: Report from Study
  Country: US (occurrence: US)
  Receive Date: 20200506
  Receipt Date: 20230621
  Transmission Date: 20230722
  Serious: Yes (Hospitalization)
  Sender: FDA-Public Use
  Company Number: US-PFIZER INC-2020177931

PATIENT
  Age: 11 Year
  Sex: Male
  Weight: 42 kg

DRUGS (11)
  1. VINCRISTINE SULFATE [Suspect]
     Active Substance: VINCRISTINE SULFATE
     Indication: Embryonal rhabdomyosarcoma
     Dosage: 1.5MG/M2 ON DAYS 1, 8, 15 OF CYCLE 1-4, 8, 11, ON DAY 1 OF CYCLES 5, 10, 12, 14, ON DAYS 1, 8 OF CYC
     Route: 042
     Dates: start: 20191004, end: 20200306
  2. TEMSIROLIMUS [Suspect]
     Active Substance: TEMSIROLIMUS
     Indication: Embryonal rhabdomyosarcoma
     Dosage: 15MG/M2 ON DAYS 1, 8, AND 15 OF CYCLES 1-4, 8-14
     Route: 042
     Dates: start: 20191004, end: 20200306
  3. CAMPTOSAR [Suspect]
     Active Substance: IRINOTECAN HYDROCHLORIDE
     Indication: Embryonal rhabdomyosarcoma
     Dosage: 50 MG/M2 ON DAYS 1-5 OF CYCLES 2, 4, 6, 7, 9, 11 AND 13
     Route: 042
  4. CYCLOPHOSPHAMIDE [Suspect]
     Active Substance: CYCLOPHOSPHAMIDE
     Indication: Embryonal rhabdomyosarcoma
     Dosage: 1200 MG/M2, IV OVER 60 MINUTES ON DAY 1 OF CYCLES 1, 3, 5, 8, 10, 12 AND 14
     Route: 042
     Dates: start: 20191004, end: 20200228
  5. DACTINOMYCIN [Suspect]
     Active Substance: DACTINOMYCIN
     Indication: Embryonal rhabdomyosarcoma
     Dosage: 0.05MG/KG ON DAY 1 OF CYCLES 1, 3, 5, 8, 10, 12 AND 14
     Route: 042
     Dates: start: 20191004, end: 20200228
  6. MESNA [Concomitant]
     Active Substance: MESNA
     Dosage: UNK
  7. BACTRIM [Concomitant]
     Active Substance: SULFAMETHOXAZOLE\TRIMETHOPRIM
     Dosage: UNK
  8. GABAPENTIN [Concomitant]
     Active Substance: GABAPENTIN
     Dosage: UNK
  9. ALLOPURINOL [Concomitant]
     Active Substance: ALLOPURINOL
     Dosage: UNK
  10. MIRALAX [Concomitant]
     Active Substance: POLYETHYLENE GLYCOL 3350
     Dosage: UNK
  11. ZOFRAN [Concomitant]
     Active Substance: ONDANSETRON HYDROCHLORIDE
     Dosage: UNK

REACTIONS (2)
  - Pharyngeal inflammation [Recovering/Resolving]
  - Stomatitis [Recovering/Resolving]

NARRATIVE: CASE EVENT DATE: 20200309
